FAERS Safety Report 14339498 (Version 1)
Quarter: 2017Q4

REPORT INFORMATION
  Report Type: Spontaneous
  Country: FR (occurrence: FR)
  Receive Date: 20171230
  Receipt Date: 20171230
  Transmission Date: 20180321
  Serious: Yes (Hospitalization, Other)
  Sender: FDA-Public Use
  Company Number: FR-AUROBINDO-AUR-APL-2017-48158

PATIENT
  Sex: Female
  Weight: 6 kg

DRUGS (20)
  1. PARACETAMOL [Suspect]
     Active Substance: ACETAMINOPHEN
     Dosage: 7.5 MG/KG, UNK
     Route: 042
     Dates: start: 20161125, end: 20161126
  2. METHYLPREDNISOLONE. [Suspect]
     Active Substance: METHYLPREDNISOLONE
     Indication: FAMILIAL HAEMOPHAGOCYTIC LYMPHOHISTIOCYTOSIS
     Dosage: 12 MG, UNK
     Route: 042
     Dates: start: 20151110
  3. CYCLOSPORINE. [Concomitant]
     Active Substance: CYCLOSPORINE
     Route: 042
     Dates: start: 20161109
  4. CAMPATH [Suspect]
     Active Substance: ALEMTUZUMAB
     Route: 041
     Dates: start: 20161125, end: 20161125
  5. BACTRIM [Suspect]
     Active Substance: SULFAMETHOXAZOLE\TRIMETHOPRIM
     Indication: PROPHYLAXIS
     Dosage: 40 MG, UNK
     Route: 042
     Dates: start: 20161119, end: 20161205
  6. UVESTEROL D [Concomitant]
     Active Substance: ERGOCALCIFEROL
     Indication: NUTRITIONAL SUPPLEMENTATION
     Dosage: 1 DF, UNK
     Route: 048
     Dates: start: 20161110, end: 20161216
  7. PARACETAMOL [Suspect]
     Active Substance: ACETAMINOPHEN
     Dosage: 60 MG, UNK
     Route: 048
     Dates: start: 20161110
  8. CYCLOSPORINE. [Concomitant]
     Active Substance: CYCLOSPORINE
     Indication: PREMEDICATION
     Route: 042
     Dates: start: 20161110
  9. PARACETAMOL [Suspect]
     Active Substance: ACETAMINOPHEN
     Indication: PREMEDICATION
     Dosage: 2.5 MG, UNK
     Route: 042
     Dates: start: 20161124, end: 20161125
  10. CAMPATH [Suspect]
     Active Substance: ALEMTUZUMAB
     Indication: FAMILIAL HAEMOPHAGOCYTIC LYMPHOHISTIOCYTOSIS
     Route: 041
     Dates: start: 20161110, end: 20161110
  11. METHYLPREDNISOLONE. [Suspect]
     Active Substance: METHYLPREDNISOLONE
     Dosage: 1 UNK, UNK
     Route: 042
     Dates: end: 20161224
  12. CYCLOSPORINE. [Concomitant]
     Active Substance: CYCLOSPORINE
     Indication: HISTIOCYTOSIS HAEMATOPHAGIC
     Route: 042
     Dates: start: 20161109
  13. CAMPATH [Suspect]
     Active Substance: ALEMTUZUMAB
     Route: 041
     Dates: start: 20161124, end: 20161124
  14. DEXCHLORPHENIRAMINE [Suspect]
     Active Substance: DEXCHLORPHENIRAMINE
     Indication: PREMEDICATION
     Dosage: 2.5 MG, UNK
     Route: 042
     Dates: start: 20161124, end: 20161125
  15. METHYLPREDNISOLONE. [Suspect]
     Active Substance: METHYLPREDNISOLONE
     Dosage: 0.9 UNK, UNK
     Route: 042
     Dates: start: 20151125, end: 20161126
  16. METHYLPREDNISOLONE. [Suspect]
     Active Substance: METHYLPREDNISOLONE
     Dosage: 140 MG, UNK
     Route: 042
     Dates: start: 20161124, end: 20161125
  17. SOLU-MEDROL [Concomitant]
     Active Substance: METHYLPREDNISOLONE SODIUM SUCCINATE
     Indication: HISTIOCYTOSIS HAEMATOPHAGIC
     Dosage: 1.6 MG, UNK
     Route: 042
     Dates: start: 20161109, end: 20161224
  18. CYCLOSPORINE. [Concomitant]
     Active Substance: CYCLOSPORINE
     Route: 042
     Dates: start: 20161110
  19. CAMPATH [Suspect]
     Active Substance: ALEMTUZUMAB
     Route: 041
     Dates: start: 20161111, end: 20161112
  20. BACTRIM [Suspect]
     Active Substance: SULFAMETHOXAZOLE\TRIMETHOPRIM
     Dosage: 140 MG, UNK
     Route: 048
     Dates: start: 20161114

REACTIONS (12)
  - Lung abscess [Recovering/Resolving]
  - Chills [Recovered/Resolved]
  - Pseudomonas test positive [Recovered/Resolved]
  - Livedo reticularis [Recovered/Resolved]
  - Pulmonary embolism [Recovered/Resolved]
  - Pyrexia [Recovered/Resolved]
  - Neutropenia [Recovered/Resolved]
  - Injection site haemorrhage [Unknown]
  - Sepsis [Recovered/Resolved with Sequelae]
  - Pseudomonal sepsis [Recovered/Resolved]
  - Tachycardia [Recovered/Resolved]
  - Pseudomonal bacteraemia [Recovered/Resolved with Sequelae]

NARRATIVE: CASE EVENT DATE: 20161128
